FAERS Safety Report 6993669-9 (Version None)
Quarter: 2010Q3

REPORT INFORMATION
  Report Type: 
  Country: None (occurrence: None)
  Receive Date: 20100917
  Receipt Date: 20070705
  Transmission Date: 20110219
  Serious: Yes (Other)
  Sender: FDA-Public Use
  Company Number: US-ASTRAZENECA-2007UW02019

PATIENT
  Age: 34 Year
  Sex: Male
  Weight: 133.4 kg

DRUGS (16)
  1. SEROQUEL [Suspect]
     Indication: BIPOLAR DISORDER
     Dosage: 100-150 MG
     Route: 048
     Dates: start: 20020121
  2. SEROQUEL [Suspect]
     Indication: INSOMNIA
     Dosage: 100-150 MG
     Route: 048
     Dates: start: 20020121
  3. SEROQUEL [Suspect]
     Indication: AGITATION
     Dosage: 100-150 MG
     Route: 048
     Dates: start: 20020121
  4. SEROQUEL [Suspect]
     Route: 048
     Dates: start: 20040101, end: 20060101
  5. SEROQUEL [Suspect]
     Route: 048
     Dates: start: 20040101, end: 20060101
  6. SEROQUEL [Suspect]
     Route: 048
     Dates: start: 20040101, end: 20060101
  7. RISPERDAL [Concomitant]
     Route: 048
     Dates: start: 19970101, end: 20060101
  8. ZYPREXA [Concomitant]
     Route: 048
     Dates: start: 20020101
  9. LITHIUM CARBONATE [Concomitant]
     Route: 048
     Dates: start: 20050101
  10. KLONOPIN [Concomitant]
     Route: 048
     Dates: start: 20070501
  11. NEURONTIN [Concomitant]
     Dates: start: 20020602
  12. THORAZINE [Concomitant]
     Dosage: 100 MG PRN
     Dates: start: 20020602
  13. ZESTRIL [Concomitant]
     Dates: start: 20051216
  14. ASPIRIN [Concomitant]
     Dates: start: 20051216
  15. METFORMIN HYDROCHLORIDE [Concomitant]
     Route: 048
     Dates: start: 20060203
  16. LAMICTAL [Concomitant]
     Dates: start: 20051216

REACTIONS (5)
  - BLOOD GLUCOSE INCREASED [None]
  - DIABETES MELLITUS INADEQUATE CONTROL [None]
  - EAR INFECTION [None]
  - HEPATITIS C [None]
  - TYPE 2 DIABETES MELLITUS [None]
